FAERS Safety Report 7799728-5 (Version None)
Quarter: 2011Q4

REPORT INFORMATION
  Report Type: 
  Country: None (occurrence: None)
  Receive Date: 20111004
  Receipt Date: 20110920
  Transmission Date: 20120403
  Serious: Yes (Death)
  Sender: FDA-Public Use
  Company Number: ES-DEXPHARM-20111438

PATIENT
  Age: 78 Year
  Sex: Female

DRUGS (8)
  1. HYDROXYZINE [Concomitant]
  2. METHYLPREDNISOLONE [Concomitant]
  3. DEFLAZACORT [Concomitant]
  4. CARBAMAZEPINE [Suspect]
     Dosage: 100 MG MILLIGRAM(S) SEP. DOSAGES / INTERVAL: 1 IN 1 DAY;
  5. CETIRIZINE HCL [Concomitant]
  6. SULPRIDE [Concomitant]
  7. CILOSTAZOL [Suspect]
     Dosage: 100 MG MILLIGRAM(S) SEP. DOSAGES / INTERVAL: 1 IN 1 DAY;
  8. OMEPRAZOLE [Suspect]
     Dosage: 20 MG MILLIGRAM(S) SEP. DOSAGES / INTERVAL: 21 IN 1 DAY

REACTIONS (10)
  - STEVENS-JOHNSON SYNDROME [None]
  - LYMPHOPENIA [None]
  - ENTEROBACTER TEST POSITIVE [None]
  - ACINETOBACTER TEST POSITIVE [None]
  - SEPTIC SHOCK [None]
  - TOXIC EPIDERMAL NECROLYSIS [None]
  - STAPHYLOCOCCUS TEST POSITIVE [None]
  - DRUG INTERACTION [None]
  - CARDIO-RESPIRATORY ARREST [None]
  - LEUKOPENIA [None]
